FAERS Safety Report 9773289 (Version 1)
Quarter: 2013Q4

REPORT INFORMATION
  Report Type: Spontaneous
  Country: IT (occurrence: IT)
  Receive Date: 20131219
  Receipt Date: 20131219
  Transmission Date: 20140711
  Serious: Yes (Hospitalization)
  Sender: FDA-Public Use
  Company Number: IT-GLAXOSMITHKLINE-B0954419A

PATIENT
  Age: 49 Year
  Sex: Male

DRUGS (1)
  1. VOTRIENT [Suspect]
     Indication: PRODUCT USED FOR UNKNOWN INDICATION
     Dosage: 800MG PER DAY
     Route: 048

REACTIONS (3)
  - Anal haemorrhage [Recovered/Resolved with Sequelae]
  - Proctalgia [Recovered/Resolved with Sequelae]
  - Sensation of heaviness [Recovered/Resolved with Sequelae]
